FAERS Safety Report 23845445 (Version 2)
Quarter: 2024Q2

REPORT INFORMATION
  Report Type: Spontaneous
  Country: CH (occurrence: CH)
  Receive Date: 20240511
  Receipt Date: 20240528
  Transmission Date: 20240716
  Serious: Yes (Hospitalization)
  Sender: FDA-Public Use
  Company Number: CH-TEVA-VS-3195773

PATIENT
  Age: 75 Year
  Sex: Female

DRUGS (1)
  1. PANTOPRAZOLE [Suspect]
     Active Substance: PANTOPRAZOLE
     Indication: Product used for unknown indication
     Route: 065

REACTIONS (4)
  - Hypomagnesaemia [Not Recovered/Not Resolved]
  - Status epilepticus [Recovered/Resolved]
  - Hypoparathyroidism secondary [Recovering/Resolving]
  - Hypocalcaemia [Unknown]
